FAERS Safety Report 4876812-7 (Version None)
Quarter: 2006Q1

REPORT INFORMATION
  Report Type: 
  Country: None (occurrence: None)
  Receive Date: 20060110
  Receipt Date: 20041231
  Transmission Date: 20060701
  Serious: Yes (Hospitalization, Disabling)
  Sender: FDA-Public Use
  Company Number: US-MERCK-0501USA00169

PATIENT
  Age: 77 Year
  Sex: Male
  Weight: 73 kg

DRUGS (5)
  1. VIOXX [Suspect]
     Indication: SPINAL COLUMN STENOSIS
     Route: 048
     Dates: start: 19990911, end: 20020811
  2. PRAVACHOL [Concomitant]
     Indication: BLOOD CHOLESTEROL INCREASED
     Route: 065
     Dates: start: 20000714, end: 20010503
  3. ZOCOR [Concomitant]
     Indication: BLOOD CHOLESTEROL INCREASED
     Route: 065
  4. AMBIEN [Concomitant]
     Indication: SLEEP DISORDER
     Route: 065
  5. TYLENOL [Concomitant]
     Route: 065

REACTIONS (21)
  - ABDOMINAL DISTENSION [None]
  - ACUTE MYOCARDIAL INFARCTION [None]
  - AKINESIA [None]
  - ALANINE AMINOTRANSFERASE INCREASED [None]
  - BRADYCARDIA [None]
  - CARDIAC FAILURE CONGESTIVE [None]
  - CORONARY ARTERY DISEASE [None]
  - DYSPEPSIA [None]
  - ESSENTIAL HYPERTENSION [None]
  - FATIGUE [None]
  - HYPOACUSIS [None]
  - HYPOTENSION [None]
  - NOCTURIA [None]
  - POLLAKIURIA [None]
  - SKIN LESION [None]
  - SLEEP DISORDER [None]
  - TESTICULAR ATROPHY [None]
  - TINNITUS [None]
  - TOE DEFORMITY [None]
  - VENTRICULAR ARRHYTHMIA [None]
  - VENTRICULAR DYSFUNCTION [None]
